FAERS Safety Report 9384129 (Version 2)
Quarter: 2013Q3

REPORT INFORMATION
  Report Type: Report from Study
  Country: BR (occurrence: BR)
  Receive Date: 20130705
  Receipt Date: 20130723
  Transmission Date: 20140515
  Serious: Yes (Hospitalization)
  Sender: FDA-Public Use
  Company Number: BR-ROCHE-1215349

PATIENT
  Age: 60 Year
  Sex: Male
  Weight: 72 kg

DRUGS (5)
  1. BEVACIZUMAB [Suspect]
     Indication: METASTATIC RENAL CELL CARCINOMA
     Dosage: LAST DOSE PRIOR TO SAE ON 10/NOV/2010
     Route: 065
     Dates: start: 20091001
  2. INTERFERON ALFA-2A [Suspect]
     Indication: METASTATIC RENAL CELL CARCINOMA
     Dosage: LAST DOSE PRIOR TO SAE ON 10/NOV/2010
     Route: 065
     Dates: start: 20091001, end: 20101110
  3. EVEROLIMUS [Suspect]
     Indication: METASTATIC RENAL CELL CARCINOMA
     Route: 048
     Dates: start: 20091001, end: 20100529
  4. LISADOR [Concomitant]
     Route: 065
  5. OMEPRAZOLE [Concomitant]
     Route: 065
     Dates: start: 20100129

REACTIONS (3)
  - Hepatotoxicity [Recovered/Resolved]
  - Jaundice [Recovered/Resolved]
  - Pneumonia [Recovered/Resolved]
